FAERS Safety Report 5018983-8 (Version None)
Quarter: 2006Q2

REPORT INFORMATION
  Report Type: 
  Country: None (occurrence: None)
  Receive Date: 20060606
  Receipt Date: 20060512
  Transmission Date: 20061013
  Serious: Yes (Other)
  Sender: FDA-Public Use
  Company Number: US-GLAXOSMITHKLINE-A0605420A

PATIENT
  Age: 46 Year
  Sex: Male
  Weight: 100 kg

DRUGS (12)
  1. REQUIP [Suspect]
     Indication: RESTLESS LEGS SYNDROME
     Dosage: 2MG PER DAY
     Route: 048
     Dates: start: 20060417, end: 20060510
  2. LIPITOR [Concomitant]
     Dosage: 20MG PER DAY
  3. LISINOPRIL [Concomitant]
     Dosage: 10MG PER DAY
  4. IBUPROFEN [Concomitant]
  5. DOXEPIN [Concomitant]
     Dosage: 25MG AT NIGHT
  6. HYDROCHLOROTHIAZIDE [Concomitant]
     Dosage: 25MG PER DAY
  7. ASPIRIN [Concomitant]
  8. ULTRAM [Concomitant]
     Dosage: 50MG AS REQUIRED
  9. DILAUDID [Concomitant]
  10. DIAZEPAM [Concomitant]
     Dosage: 10MG AS REQUIRED
  11. FENTANYL [Concomitant]
     Route: 062
  12. ZOLOFT [Concomitant]
     Dosage: 100MG PER DAY

REACTIONS (2)
  - FORMICATION [None]
  - HALLUCINATION [None]
